FAERS Safety Report 14594047 (Version 3)
Quarter: 2018Q2

REPORT INFORMATION
  Report Type: Spontaneous
  Country: DE (occurrence: DE)
  Receive Date: 20180302
  Receipt Date: 20180429
  Transmission Date: 20180711
  Serious: Yes (Hospitalization, Other)
  Sender: FDA-Public Use
  Company Number: DE-BIOGEN-2018BI00530363

PATIENT
  Age: 26 Year
  Sex: Female
  Weight: 104 kg

DRUGS (7)
  1. FLUOXETINE [Concomitant]
     Active Substance: FLUOXETINE HYDROCHLORIDE
     Indication: PRODUCT USED FOR UNKNOWN INDICATION
     Route: 065
  2. ZINBRYTA [Suspect]
     Active Substance: DACLIZUMAB
     Indication: MULTIPLE SCLEROSIS
     Route: 065
     Dates: start: 20170525
  3. FAMPYRA [Suspect]
     Active Substance: DALFAMPRIDINE
     Indication: GAIT DISTURBANCE
     Route: 048
     Dates: start: 20140812
  4. LEMTRADA [Concomitant]
     Active Substance: ALEMTUZUMAB
     Indication: MULTIPLE SCLEROSIS
     Route: 065
     Dates: start: 20160716, end: 20160718
  5. BACLOFEN. [Concomitant]
     Active Substance: BACLOFEN
     Indication: MUSCLE SPASTICITY
     Route: 065
     Dates: start: 20150420
  6. FOLIC ACID. [Concomitant]
     Active Substance: FOLIC ACID
     Indication: PRODUCT USED FOR UNKNOWN INDICATION
     Route: 065
     Dates: start: 201711
  7. DEKRISTOL [Concomitant]
     Active Substance: CHOLECALCIFEROL
     Indication: VITAMIN D DEFICIENCY
     Route: 065
     Dates: start: 20131202

REACTIONS (54)
  - Multiple sclerosis relapse [Unknown]
  - Contusion [Not Recovered/Not Resolved]
  - Fall [Not Recovered/Not Resolved]
  - C-reactive protein increased [Unknown]
  - Asthenia [Not Recovered/Not Resolved]
  - Pain [Unknown]
  - Cyanosis [Recovered/Resolved]
  - Rash [Unknown]
  - Pyrexia [Unknown]
  - Rhinorrhoea [Unknown]
  - Cystitis [Unknown]
  - Balance disorder [Unknown]
  - Tonsillitis bacterial [Recovered/Resolved]
  - Central nervous system lesion [Unknown]
  - Oral fungal infection [Recovered/Resolved]
  - Bronchitis [Unknown]
  - Dyspnoea [Recovered/Resolved]
  - Fatigue [Not Recovered/Not Resolved]
  - Contusion [Recovered/Resolved]
  - Arrhythmia [Unknown]
  - Sinusitis [Unknown]
  - Neck pain [Unknown]
  - Lymphocyte count decreased [Unknown]
  - Dysphagia [Unknown]
  - Paraesthesia [Not Recovered/Not Resolved]
  - Infection [Recovered/Resolved]
  - Haemorrhage [Unknown]
  - Cystitis [Unknown]
  - Intra-abdominal haematoma [Unknown]
  - Mental disorder [Unknown]
  - Heart rate abnormal [Unknown]
  - Influenza [Unknown]
  - Liver function test abnormal [Recovered/Resolved]
  - Weight decreased [Unknown]
  - Bacterial infection [Recovered/Resolved]
  - Muscular weakness [Unknown]
  - Neuropathy peripheral [Unknown]
  - Nasopharyngitis [Unknown]
  - Neutrophil percentage increased [Unknown]
  - Anxiety [Unknown]
  - Tooth abscess [Recovered/Resolved]
  - Rhinitis [Unknown]
  - Seasonal allergy [Unknown]
  - Gastric disorder [Recovered/Resolved]
  - Maternal exposure before pregnancy [Unknown]
  - Pharyngeal inflammation [Unknown]
  - Neutrophil count increased [Unknown]
  - Nasal congestion [Unknown]
  - Nausea [Unknown]
  - Gait disturbance [Not Recovered/Not Resolved]
  - Epilepsy [Unknown]
  - Unevaluable event [Not Recovered/Not Resolved]
  - Skin discolouration [Unknown]
  - Vestibular disorder [Not Recovered/Not Resolved]

NARRATIVE: CASE EVENT DATE: 20170702
